APPROVED DRUG PRODUCT: EPIRUBICIN HYDROCHLORIDE
Active Ingredient: EPIRUBICIN HYDROCHLORIDE
Strength: 150MG/75ML (2MG/ML)
Dosage Form/Route: INJECTABLE;INJECTION
Application: A065343 | Product #003
Applicant: HOSPIRA INC
Approved: Apr 19, 2007 | RLD: No | RS: No | Type: DISCN